FAERS Safety Report 5814689-3 (Version None)
Quarter: 2008Q3

REPORT INFORMATION
  Report Type: 
  Country: None (occurrence: None)
  Receive Date: 20080718
  Receipt Date: 20080320
  Transmission Date: 20090109
  Serious: No
  Sender: FDA-Public Use
  Company Number: US-KINGPHARMUSA00001-K200800349

PATIENT

DRUGS (2)
  1. LEVOXYL [Suspect]
     Indication: HYPOTHYROIDISM
     Route: 048
     Dates: start: 20060101, end: 20060101
  2. LIOTHYRONINE SODIUM [Concomitant]
     Indication: THYROID DISORDER
     Route: 048

REACTIONS (3)
  - ERYTHEMA [None]
  - PRURITUS [None]
  - SKIN EXFOLIATION [None]
